FAERS Safety Report 5510781-1 (Version None)
Quarter: 2007Q4

REPORT INFORMATION
  Report Type: 
  Country: None (occurrence: None)
  Receive Date: 20071108
  Receipt Date: 20071105
  Transmission Date: 20080405
  Serious: Yes (Other)
  Sender: FDA-Public Use
  Company Number: B0494323A

PATIENT
  Sex: Male

DRUGS (5)
  1. ZIAGEN [Suspect]
     Indication: HIV INFECTION
     Route: 065
  2. ATENOLOL [Concomitant]
     Indication: HYPERTENSION
  3. VIRAMUNE [Concomitant]
     Indication: HIV INFECTION
  4. VIDEX [Concomitant]
     Indication: HIV INFECTION
  5. METFORMIN HCL [Concomitant]

REACTIONS (3)
  - GAIT DISTURBANCE [None]
  - OSTEONECROSIS [None]
  - PAIN [None]
